FAERS Safety Report 11713241 (Version 1)
Quarter: 2015Q4

REPORT INFORMATION
  Report Type: Spontaneous
  Country: GB (occurrence: GB)
  Receive Date: 20151109
  Receipt Date: 20151109
  Transmission Date: 20160304
  Serious: Yes (Hospitalization, Disabling, Other)
  Sender: FDA-Public Use
  Company Number: GB-UCBSA-2015035313

PATIENT
  Age: 20 Year
  Sex: Female
  Weight: 60 kg

DRUGS (2)
  1. LAMOTRIGINE. [Concomitant]
     Active Substance: LAMOTRIGINE
     Indication: PRODUCT USED FOR UNKNOWN INDICATION
  2. VIMPAT [Suspect]
     Active Substance: LACOSAMIDE
     Indication: STATUS EPILEPTICUS
     Dosage: 50 MG, 2X/DAY (BID)
     Route: 048
     Dates: start: 20150702, end: 2015

REACTIONS (6)
  - Insomnia [Not Recovered/Not Resolved]
  - Dysarthria [Not Recovered/Not Resolved]
  - Alice in wonderland syndrome [Not Recovered/Not Resolved]
  - Diplegia [Not Recovered/Not Resolved]
  - Dysphemia [Not Recovered/Not Resolved]
  - Hallucination [Not Recovered/Not Resolved]

NARRATIVE: CASE EVENT DATE: 2015
